FAERS Safety Report 5238876-0 (Version None)
Quarter: 2007Q1

REPORT INFORMATION
  Report Type: 
  Country: None (occurrence: None)
  Receive Date: 20070209
  Receipt Date: 20070130
  Transmission Date: 20070707
  Serious: Yes (Hospitalization)
  Sender: FDA-Public Use
  Company Number: 2006BI018173

PATIENT
  Age: 42 Year
  Sex: Female

DRUGS (1)
  1. AVONEX [Suspect]
     Indication: MULTIPLE SCLEROSIS
     Dosage: 30 UG; QW; IM
     Route: 030
     Dates: start: 20000501

REACTIONS (5)
  - GASTROINTESTINAL INFECTION [None]
  - HAEMORRHAGE [None]
  - KIDNEY INFECTION [None]
  - NO THERAPEUTIC RESPONSE [None]
  - PAIN [None]
